FAERS Safety Report 9919123 (Version 1)
Quarter: 2014Q1

REPORT INFORMATION
  Report Type: Spontaneous
  Country: US (occurrence: US)
  Receive Date: 20140224
  Receipt Date: 20140224
  Transmission Date: 20141002
  Serious: No
  Sender: FDA-Public Use
  Company Number: US-009507513-1402USA011118

PATIENT
  Sex: Female

DRUGS (1)
  1. TIMOPTIC IN OCUDOSE [Suspect]
     Indication: GLAUCOMA
     Route: 047

REACTIONS (3)
  - Skin irritation [Unknown]
  - Abnormal sensation in eye [Unknown]
  - Eye irritation [Unknown]
